FAERS Safety Report 23851831 (Version 1)
Quarter: 2024Q2

REPORT INFORMATION
  Report Type: Spontaneous
  Country: CA (occurrence: CA)
  Receive Date: 20240514
  Receipt Date: 20240514
  Transmission Date: 20240716
  Serious: Yes (Hospitalization, Other)
  Sender: FDA-Public Use
  Company Number: CA-002147023-NVSC2023CA131991

PATIENT
  Age: 63 Year
  Sex: Female

DRUGS (16)
  1. ADALIMUMAB [Suspect]
     Active Substance: ADALIMUMAB\ISOPROPYL ALCOHOL
     Indication: Product used for unknown indication
     Dosage: 40 MG, QW (1 EVERY 1 WEEKS)
     Route: 058
  2. ADALIMUMAB [Suspect]
     Active Substance: ADALIMUMAB\ISOPROPYL ALCOHOL
     Dosage: 40 MG, QW (1 EVERY 1 WEEKS)
     Route: 058
  3. ADALIMUMAB [Suspect]
     Active Substance: ADALIMUMAB\ISOPROPYL ALCOHOL
     Dosage: 40 MG
     Route: 058
  4. ADALIMUMAB [Suspect]
     Active Substance: ADALIMUMAB\ISOPROPYL ALCOHOL
     Dosage: 40 MG
     Route: 058
  5. INFLIXIMAB [Suspect]
     Active Substance: INFLIXIMAB
     Indication: Cardiac sarcoidosis
     Dosage: 325 MG
     Route: 042
  6. INFLIXIMAB [Suspect]
     Active Substance: INFLIXIMAB
     Dosage: 325 MG
     Route: 042
  7. INFLIXIMAB [Suspect]
     Active Substance: INFLIXIMAB
     Dosage: 325 MG
     Route: 042
  8. INFLIXIMAB [Suspect]
     Active Substance: INFLIXIMAB
     Dosage: 325 MG
     Route: 042
  9. INFLIXIMAB [Suspect]
     Active Substance: INFLIXIMAB
     Dosage: 325 MG
     Route: 042
  10. INFLIXIMAB [Suspect]
     Active Substance: INFLIXIMAB
     Dosage: 325 MG
     Route: 042
  11. INFLIXIMAB [Suspect]
     Active Substance: INFLIXIMAB
     Dosage: 325 MG
     Route: 042
  12. ADALIMUMAB [Concomitant]
     Active Substance: ADALIMUMAB\ISOPROPYL ALCOHOL
     Indication: Product used for unknown indication
     Route: 065
  13. ADALIMUMAB [Concomitant]
     Active Substance: ADALIMUMAB\ISOPROPYL ALCOHOL
     Indication: Product used for unknown indication
     Route: 065
  14. LIPITOR [Concomitant]
     Active Substance: ATORVASTATIN CALCIUM
     Indication: Blood cholesterol abnormal
     Route: 065
  15. LIPITOR [Concomitant]
     Active Substance: ATORVASTATIN CALCIUM
     Indication: Blood cholesterol abnormal
     Route: 065
  16. PREDNISONE [Concomitant]
     Active Substance: PREDNISONE
     Indication: Product used for unknown indication
     Dosage: UNK
     Route: 065

REACTIONS (21)
  - Cerebrovascular accident [Not Recovered/Not Resolved]
  - Fatigue [Not Recovered/Not Resolved]
  - Fatigue [Not Recovered/Not Resolved]
  - Epistaxis [Not Recovered/Not Resolved]
  - Intentional product use issue [Not Recovered/Not Resolved]
  - Inappropriate schedule of product administration [Not Recovered/Not Resolved]
  - Off label use [Not Recovered/Not Resolved]
  - Off label use [Not Recovered/Not Resolved]
  - COVID-19 [Not Recovered/Not Resolved]
  - Crohn^s disease [Not Recovered/Not Resolved]
  - Abdominal pain [Not Recovered/Not Resolved]
  - Angioedema [Not Recovered/Not Resolved]
  - Diarrhoea [Not Recovered/Not Resolved]
  - Dysphonia [Not Recovered/Not Resolved]
  - Hemiparesis [Not Recovered/Not Resolved]
  - Hiatus hernia [Not Recovered/Not Resolved]
  - Immunosuppression [Not Recovered/Not Resolved]
  - Large intestinal stenosis [Not Recovered/Not Resolved]
  - Mutism [Not Recovered/Not Resolved]
  - Swollen tongue [Not Recovered/Not Resolved]
  - Urticaria [Not Recovered/Not Resolved]
